FAERS Safety Report 10500207 (Version 2)
Quarter: 2014Q4

REPORT INFORMATION
  Report Type: Spontaneous
  Country: US (occurrence: US)
  Receive Date: 20141006
  Receipt Date: 20141006
  Transmission Date: 20150528
  Serious: No
  Sender: FDA-Public Use
  Company Number: US-AMGEN INC.-USASP2014038116

PATIENT
  Age: 74 Year
  Sex: Female
  Weight: 71.66 kg

DRUGS (4)
  1. PROLIA [Suspect]
     Active Substance: DENOSUMAB
     Indication: OSTEOPOROSIS POSTMENOPAUSAL
     Dosage: 60 MG, Q6MO
     Route: 058
     Dates: start: 20140501
  2. DIOVAN [Concomitant]
     Active Substance: VALSARTAN
  3. CALCIUM [Concomitant]
     Active Substance: CALCIUM
  4. PREMARIN [Concomitant]
     Active Substance: ESTROGENS, CONJUGATED

REACTIONS (4)
  - Depression [Unknown]
  - Headache [Recovering/Resolving]
  - Pain [Unknown]
  - Chest pain [Recovered/Resolved]

NARRATIVE: CASE EVENT DATE: 20140501
